FAERS Safety Report 6055365-4 (Version None)
Quarter: 2009Q1

REPORT INFORMATION
  Report Type: 
  Country: None (occurrence: None)
  Receive Date: 20090128
  Receipt Date: 20090113
  Transmission Date: 20090719
  Serious: Yes (Other)
  Sender: FDA-Public Use
  Company Number: JP-PFIZER INC-2009159642

PATIENT

DRUGS (1)
  1. LIPITOR [Suspect]
     Dosage: UNK
     Route: 048
     Dates: start: 20080101, end: 20080201

REACTIONS (1)
  - LIVER DISORDER [None]
